FAERS Safety Report 12379242 (Version 1)
Quarter: 2016Q2

REPORT INFORMATION
  Report Type: Report from Study
  Country: CA (occurrence: CA)
  Receive Date: 20160517
  Receipt Date: 20160517
  Transmission Date: 20160815
  Serious: Yes (Other)
  Sender: FDA-Public Use
  Company Number: CA-JNJFOC-20160513232

PATIENT
  Age: 68 Year
  Sex: Female

DRUGS (1)
  1. STELARA [Suspect]
     Active Substance: USTEKINUMAB
     Indication: PSORIASIS
     Route: 058
     Dates: start: 20150722, end: 20160511

REACTIONS (3)
  - Product use issue [Unknown]
  - Off label use [Unknown]
  - Malignant neoplasm of eye [Not Recovered/Not Resolved]

NARRATIVE: CASE EVENT DATE: 20150722
